FAERS Safety Report 11812284 (Version 1)
Quarter: 2015Q4

REPORT INFORMATION
  Report Type: Spontaneous
  Country: US (occurrence: US)
  Receive Date: 20151208
  Receipt Date: 20151208
  Transmission Date: 20160305
  Serious: Yes (Hospitalization)
  Sender: FDA-Public Use
  Company Number: US-GLAXOSMITHKLINE-US2015174161

PATIENT
  Age: 39 Year
  Sex: Female

DRUGS (11)
  1. BENLYSTA [Suspect]
     Active Substance: BELIMUMAB
     Indication: SYSTEMIC LUPUS ERYTHEMATOSUS
     Dosage: UNK, U
     Route: 041
     Dates: start: 20151103
  2. METHOTREXATE [Concomitant]
     Active Substance: METHOTREXATE
  3. RELPAX [Concomitant]
     Active Substance: ELETRIPTAN HYDROBROMIDE
  4. SYNTHROID [Concomitant]
     Active Substance: LEVOTHYROXINE SODIUM
  5. TOPROL XL [Concomitant]
     Active Substance: METOPROLOL SUCCINATE
  6. ZOFRAN [Concomitant]
     Active Substance: ONDANSETRON HYDROCHLORIDE
  7. PLAQUENIL [Concomitant]
     Active Substance: HYDROXYCHLOROQUINE SULFATE
  8. PREDNISONE. [Concomitant]
     Active Substance: PREDNISONE
  9. BENLYSTA [Suspect]
     Active Substance: BELIMUMAB
  10. XANAX [Concomitant]
     Active Substance: ALPRAZOLAM
  11. CELEBREX [Concomitant]
     Active Substance: CELECOXIB

REACTIONS (12)
  - Dyspnoea [Unknown]
  - Haematuria [Not Recovered/Not Resolved]
  - Sinus headache [Unknown]
  - Red blood cells urine [Not Recovered/Not Resolved]
  - Red blood cell count decreased [Unknown]
  - Renal pain [Not Recovered/Not Resolved]
  - Pain [Unknown]
  - Influenza [Unknown]
  - Tachycardia [Unknown]
  - Urethral dilatation [Unknown]
  - White blood cell count increased [Unknown]
  - Chest pain [Unknown]

NARRATIVE: CASE EVENT DATE: 20151104
